FAERS Safety Report 11202844 (Version 1)
Quarter: 2015Q2

REPORT INFORMATION
  Report Type: Report from Study
  Country: US (occurrence: US)
  Receive Date: 20150619
  Receipt Date: 20150619
  Transmission Date: 20150821
  Serious: Yes (Life-Threatening, Hospitalization)
  Sender: FDA-Public Use
  Company Number: US-PFIZER INC-HQWYE057507OCT03

PATIENT
  Age: 56 Year
  Sex: Female
  Weight: 62 kg

DRUGS (1)
  1. BAZEDOXIFENE ACETATE/EQUILIN SULFATE SODIUM/ESTRONE SODIUM SULFATE [Suspect]
     Active Substance: BAZEDOXIFENE ACETATE\ESTROGENS, CONJUGATED
     Indication: MENOPAUSE
     Dosage: 1 DF, 1X/DAY
     Route: 048
     Dates: start: 20030627, end: 20030905

REACTIONS (10)
  - Loss of consciousness [None]
  - Dysstasia [None]
  - Diarrhoea [None]
  - Hypokalaemia [None]
  - Hyponatraemia [None]
  - Road traffic accident [None]
  - Asthenia [None]
  - Dehydration [None]
  - Myocardial infarction [Recovered/Resolved]
  - Alcoholic [None]

NARRATIVE: CASE EVENT DATE: 20030930
